FAERS Safety Report 6092748-0 (Version None)
Quarter: 2009Q1

REPORT INFORMATION
  Report Type: 
  Country: None (occurrence: None)
  Receive Date: 20090225
  Receipt Date: 20090224
  Transmission Date: 20090719
  Serious: Yes (Death)
  Sender: FDA-Public Use
  Company Number: BE-JNJFOC-20090205763

PATIENT
  Sex: Female

DRUGS (3)
  1. TAVANIC [Suspect]
     Indication: RESPIRATORY TRACT INFECTION
     Route: 065
  2. NEUROLEPTICS [Interacting]
     Indication: DRUG USE FOR UNKNOWN INDICATION
     Route: 065
  3. ANTIFUNGAL NOS [Interacting]
     Indication: DRUG USE FOR UNKNOWN INDICATION
     Route: 065

REACTIONS (2)
  - DRUG INTERACTION [None]
  - SHOCK [None]
